FAERS Safety Report 5278935-X (Version None)
Quarter: 2007Q1

REPORT INFORMATION
  Report Type: 
  Country: None (occurrence: None)
  Receive Date: 20070327
  Receipt Date: 20070327
  Transmission Date: 20070707
  Serious: Yes (Hospitalization)
  Sender: FDA-Public Use
  Company Number: None

PATIENT
  Age: 72 Year
  Sex: Female
  Weight: 64.4108 kg

DRUGS (3)
  1. CLONIDINE [Suspect]
     Indication: HYPERTENSION
     Dosage: 0.2 MG BID
     Dates: start: 20070101, end: 20070301
  2. TOPROL-XL [Concomitant]
  3. NORTRIPTYLINE HCL [Concomitant]

REACTIONS (3)
  - ABASIA [None]
  - MUSCLE RIGIDITY [None]
  - TREMOR [None]
